FAERS Safety Report 9079509 (Version 1)
Quarter: 2013Q1

REPORT INFORMATION
  Report Type: Spontaneous
  Country: NO (occurrence: NO)
  Receive Date: 20130215
  Receipt Date: 20130215
  Transmission Date: 20140127
  Serious: Yes (Hospitalization, Disabling, Other)
  Sender: FDA-Public Use
  Company Number: NO-ABBOTT-13P-122-1049913-00

PATIENT
  Sex: Male

DRUGS (13)
  1. HUMIRA [Suspect]
     Indication: RHEUMATOID ARTHRITIS
     Dates: start: 20050420, end: 20071021
  2. IMUREL [Suspect]
     Indication: PRODUCT USED FOR UNKNOWN INDICATION
     Dates: start: 2011
  3. MABTHERA [Suspect]
     Indication: PRODUCT USED FOR UNKNOWN INDICATION
  4. UNKNOWN BLOOD PRESSURE DRUG [Concomitant]
     Indication: BLOOD PRESSURE
  5. PREDNISOLONE [Concomitant]
     Indication: PRODUCT USED FOR UNKNOWN INDICATION
  6. METOJECT [Concomitant]
     Indication: PRODUCT USED FOR UNKNOWN INDICATION
  7. FOLSYRE NAF [Concomitant]
     Indication: PRODUCT USED FOR UNKNOWN INDICATION
  8. CALCIGRAN [Concomitant]
     Indication: PRODUCT USED FOR UNKNOWN INDICATION
  9. ALBYL-E [Concomitant]
     Indication: PRODUCT USED FOR UNKNOWN INDICATION
  10. SIMVASTATIN [Concomitant]
     Indication: PRODUCT USED FOR UNKNOWN INDICATION
  11. PARACET [Concomitant]
     Indication: PRODUCT USED FOR UNKNOWN INDICATION
  12. IBUX [Concomitant]
     Indication: PRODUCT USED FOR UNKNOWN INDICATION
  13. MYCOMUST [Concomitant]
     Indication: PRODUCT USED FOR UNKNOWN INDICATION

REACTIONS (8)
  - Pleuropericarditis [Unknown]
  - Pneumonia [Not Recovered/Not Resolved]
  - Atrial fibrillation [Unknown]
  - Musculoskeletal pain [Unknown]
  - Pleural effusion [Unknown]
  - Pericardial effusion [Unknown]
  - Impaired work ability [Unknown]
  - Disability [Not Recovered/Not Resolved]
